FAERS Safety Report 6661522-6 (Version None)
Quarter: 2010Q1

REPORT INFORMATION
  Report Type: 
  Country: None (occurrence: None)
  Receive Date: 20100331
  Receipt Date: 20100325
  Transmission Date: 20100710
  Serious: Yes (Hospitalization)
  Sender: FDA-Public Use
  Company Number: FR-BRISTOL-MYERS SQUIBB COMPANY-15039951

PATIENT

DRUGS (4)
  1. CETUXIMAB [Suspect]
     Indication: HEAD AND NECK CANCER
     Dosage: STRENGTH= 5MG/ML
     Route: 042
  2. CISPLATIN [Suspect]
     Indication: HEAD AND NECK CANCER
     Route: 042
  3. FLUOROURACIL [Suspect]
     Indication: HEAD AND NECK CANCER
     Dosage: CONTINUOUS INFUSION DAY 1 TO DAY 4 OF THE CYCLE
     Route: 042
  4. CILENGITIDE [Suspect]
     Indication: HEAD AND NECK CANCER
     Route: 042

REACTIONS (5)
  - FATIGUE [None]
  - NAUSEA [None]
  - STOMATITIS [None]
  - VERTIGO [None]
  - VOMITING [None]
